FAERS Safety Report 25380645 (Version 2)
Quarter: 2025Q2

REPORT INFORMATION
  Report Type: Spontaneous
  Country: IT (occurrence: IT)
  Receive Date: 20250530
  Receipt Date: 20250623
  Transmission Date: 20250717
  Serious: Yes (Death, Other)
  Sender: MYLAN
  Company Number: None

PATIENT
  Age: 77 Year
  Sex: Male
  Weight: 75 kg

DRUGS (36)
  1. PANTOPRAZOLE [Interacting]
     Active Substance: PANTOPRAZOLE
     Indication: Product used for unknown indication
     Dosage: 40 MILLIGRAM, QD
     Dates: start: 20250426, end: 20250430
  2. PANTOPRAZOLE [Interacting]
     Active Substance: PANTOPRAZOLE
     Dosage: 40 MILLIGRAM, QD
     Route: 065
     Dates: start: 20250426, end: 20250430
  3. PANTOPRAZOLE [Interacting]
     Active Substance: PANTOPRAZOLE
     Dosage: 40 MILLIGRAM, QD
     Route: 065
     Dates: start: 20250426, end: 20250430
  4. PANTOPRAZOLE [Interacting]
     Active Substance: PANTOPRAZOLE
     Dosage: 40 MILLIGRAM, QD
     Dates: start: 20250426, end: 20250430
  5. PIPERACILLIN SODIUM\TAZOBACTAM SODIUM [Interacting]
     Active Substance: PIPERACILLIN SODIUM\TAZOBACTAM SODIUM
     Indication: Product used for unknown indication
     Dosage: 4.5 GRAM, Q8H
     Dates: start: 20250427, end: 20250430
  6. PIPERACILLIN SODIUM\TAZOBACTAM SODIUM [Interacting]
     Active Substance: PIPERACILLIN SODIUM\TAZOBACTAM SODIUM
     Dosage: 4.5 GRAM, Q8H
     Route: 042
     Dates: start: 20250427, end: 20250430
  7. PIPERACILLIN SODIUM\TAZOBACTAM SODIUM [Interacting]
     Active Substance: PIPERACILLIN SODIUM\TAZOBACTAM SODIUM
     Dosage: 4.5 GRAM, Q8H
     Route: 042
     Dates: start: 20250427, end: 20250430
  8. PIPERACILLIN SODIUM\TAZOBACTAM SODIUM [Interacting]
     Active Substance: PIPERACILLIN SODIUM\TAZOBACTAM SODIUM
     Dosage: 4.5 GRAM, Q8H
     Dates: start: 20250427, end: 20250430
  9. METHOTREXATE SODIUM [Interacting]
     Active Substance: METHOTREXATE SODIUM
     Indication: Central nervous system lymphoma
     Route: 042
     Dates: start: 20250405, end: 20250405
  10. METHOTREXATE SODIUM [Interacting]
     Active Substance: METHOTREXATE SODIUM
     Dates: start: 20250405, end: 20250405
  11. METHOTREXATE SODIUM [Interacting]
     Active Substance: METHOTREXATE SODIUM
     Dates: start: 20250405, end: 20250405
  12. METHOTREXATE SODIUM [Interacting]
     Active Substance: METHOTREXATE SODIUM
     Route: 042
     Dates: start: 20250405, end: 20250405
  13. METHOTREXATE SODIUM [Interacting]
     Active Substance: METHOTREXATE SODIUM
     Route: 042
     Dates: start: 20250429, end: 20250429
  14. METHOTREXATE SODIUM [Interacting]
     Active Substance: METHOTREXATE SODIUM
     Dates: start: 20250429, end: 20250429
  15. METHOTREXATE SODIUM [Interacting]
     Active Substance: METHOTREXATE SODIUM
     Dates: start: 20250429, end: 20250429
  16. METHOTREXATE SODIUM [Interacting]
     Active Substance: METHOTREXATE SODIUM
     Route: 042
     Dates: start: 20250429, end: 20250429
  17. RITUXIMAB [Concomitant]
     Active Substance: RITUXIMAB
  18. RITUXIMAB [Concomitant]
     Active Substance: RITUXIMAB
     Route: 065
  19. RITUXIMAB [Concomitant]
     Active Substance: RITUXIMAB
     Route: 065
  20. RITUXIMAB [Concomitant]
     Active Substance: RITUXIMAB
  21. Delapril;Indapamide [Concomitant]
  22. Delapril;Indapamide [Concomitant]
     Route: 065
  23. Delapril;Indapamide [Concomitant]
     Route: 065
  24. Delapril;Indapamide [Concomitant]
  25. ACYCLOVIR [Concomitant]
     Active Substance: ACYCLOVIR
  26. ACYCLOVIR [Concomitant]
     Active Substance: ACYCLOVIR
     Route: 065
  27. ACYCLOVIR [Concomitant]
     Active Substance: ACYCLOVIR
     Route: 065
  28. ACYCLOVIR [Concomitant]
     Active Substance: ACYCLOVIR
  29. BISOPROLOL FUMARATE [Concomitant]
     Active Substance: BISOPROLOL FUMARATE
  30. BISOPROLOL FUMARATE [Concomitant]
     Active Substance: BISOPROLOL FUMARATE
     Route: 065
  31. BISOPROLOL FUMARATE [Concomitant]
     Active Substance: BISOPROLOL FUMARATE
     Route: 065
  32. BISOPROLOL FUMARATE [Concomitant]
     Active Substance: BISOPROLOL FUMARATE
  33. AMLODIPINE [Concomitant]
     Active Substance: AMLODIPINE BESYLATE
  34. AMLODIPINE [Concomitant]
     Active Substance: AMLODIPINE BESYLATE
     Route: 065
  35. AMLODIPINE [Concomitant]
     Active Substance: AMLODIPINE BESYLATE
     Route: 065
  36. AMLODIPINE [Concomitant]
     Active Substance: AMLODIPINE BESYLATE

REACTIONS (2)
  - Acute kidney injury [Fatal]
  - Drug interaction [Unknown]

NARRATIVE: CASE EVENT DATE: 20250430
